FAERS Safety Report 4375780-4 (Version None)
Quarter: 2004Q2

REPORT INFORMATION
  Report Type: 
  Country: None (occurrence: None)
  Receive Date: 20040609
  Receipt Date: 20040609
  Transmission Date: 20050107
  Serious: Yes (Hospitalization)
  Sender: FDA-Public Use
  Company Number: None

PATIENT
  Sex: Female

DRUGS (5)
  1. DILANTIN [Suspect]
     Indication: CONVULSION PROPHYLAXIS
     Dosage: 300 MG IV Q 8HRS
     Route: 042
     Dates: start: 20040403, end: 20040411
  2. VANCOMYCIN [Concomitant]
  3. CEFEPIME [Concomitant]
  4. SSI [Concomitant]
  5. HYDRALAZINE [Concomitant]

REACTIONS (7)
  - CONFUSIONAL STATE [None]
  - DEPRESSED LEVEL OF CONSCIOUSNESS [None]
  - LETHARGY [None]
  - PNEUMOCEPHALUS [None]
  - POST PROCEDURAL COMPLICATION [None]
  - SINUS DISORDER [None]
  - SURGICAL PROCEDURE REPEATED [None]
